FAERS Safety Report 4281399-6 (Version None)
Quarter: 2004Q1

REPORT INFORMATION
  Report Type: 
  Country: None (occurrence: None)
  Receive Date: 20040112
  Receipt Date: 20030423
  Transmission Date: 20041129
  Serious: Yes (Other)
  Sender: FDA-Public Use
  Company Number: NSADSS2003019795

PATIENT
  Age: 70 Year
  Sex: Male

DRUGS (4)
  1. REOPRO [Suspect]
     Indication: THROMBOSIS
     Dosage: , 1 IN 1 AS NECESSARY, INTRAVENOUS;    , 1 IN 1 AS NECESSARY, INTRAVENOUS
     Route: 042
  2. HEPARIN [Concomitant]
  3. PLAVIX [Concomitant]
  4. ACETYLSALICYLIC ACID SRT [Concomitant]

REACTIONS (2)
  - GASTROINTESTINAL HAEMORRHAGE [None]
  - THROMBOCYTOPENIA [None]
